FAERS Safety Report 18324904 (Version 4)
Quarter: 2020Q4

REPORT INFORMATION
  Report Type: Spontaneous
  Country: US (occurrence: US)
  Receive Date: 20200928
  Receipt Date: 20201208
  Transmission Date: 20210113
  Serious: Yes (Other)
  Sender: FDA-Public Use
  Company Number: US-COOPERSURGICAL, INC.-US-2020CPS002318

PATIENT
  Age: 44 Year
  Sex: Female
  Weight: 102.4 kg

DRUGS (2)
  1. NEXPLANON [Concomitant]
     Active Substance: ETONOGESTREL
     Indication: CONTRACEPTION
     Dosage: UNK
     Route: 065
  2. PARAGARD T 380A [Suspect]
     Active Substance: COPPER
     Indication: PRODUCT USED FOR UNKNOWN INDICATION
     Dosage: UNK
     Route: 015
     Dates: start: 20120126

REACTIONS (17)
  - Device breakage [Not Recovered/Not Resolved]
  - Foreign body in reproductive tract [Not Recovered/Not Resolved]
  - Economic problem [Unknown]
  - Discomfort [Unknown]
  - Pelvic adhesions [Not Recovered/Not Resolved]
  - Disability [Unknown]
  - Anxiety [Unknown]
  - Dysfunctional uterine bleeding [Unknown]
  - Emotional distress [Unknown]
  - Reproductive complication associated with device [Unknown]
  - Anhedonia [Unknown]
  - Complication of device removal [Not Recovered/Not Resolved]
  - Injury associated with device [Unknown]
  - Endometriosis [Unknown]
  - Embedded device [Not Recovered/Not Resolved]
  - Pain [Unknown]
  - Deformity [Unknown]

NARRATIVE: CASE EVENT DATE: 202003
